FAERS Safety Report 10173393 (Version 1)
Quarter: 2014Q2

REPORT INFORMATION
  Report Type: Spontaneous
  Country: US (occurrence: None)
  Receive Date: 20140514
  Receipt Date: 20140514
  Transmission Date: 20141212
  Serious: Yes (Disabling)
  Sender: FDA-Public Use
  Company Number: None

PATIENT
  Age: 48 Year
  Sex: Female
  Weight: 79.38 kg

DRUGS (1)
  1. TOPRIMATE [Suspect]
     Indication: MIGRAINE PROPHYLAXIS
     Dosage: ONE TAB, ONCE DAILY, TAKEN BY MOUTH
     Route: 048
     Dates: start: 20140402, end: 20140423

REACTIONS (1)
  - Alopecia [None]
